FAERS Safety Report 19955440 (Version 2)
Quarter: 2021Q4

REPORT INFORMATION
  Report Type: Spontaneous
  Country: JP (occurrence: JP)
  Receive Date: 20211014
  Receipt Date: 20211215
  Transmission Date: 20220303
  Serious: Yes (Other)
  Sender: FDA-Public Use
  Company Number: JP-ONO-2021JP023286

PATIENT
  Age: 5 Decade
  Sex: Female

DRUGS (4)
  1. BRAFTOVI [Suspect]
     Active Substance: ENCORAFENIB
     Indication: Malignant melanoma
     Dosage: 450 MG
     Route: 048
     Dates: start: 20210831, end: 20210903
  2. BRAFTOVI [Suspect]
     Active Substance: ENCORAFENIB
     Dosage: 450 MG
     Route: 048
     Dates: start: 20210914
  3. MEKTOVI [Suspect]
     Active Substance: BINIMETINIB
     Indication: Malignant melanoma
     Dosage: 45 MG
     Route: 048
     Dates: start: 20210831, end: 20210903
  4. MEKTOVI [Suspect]
     Active Substance: BINIMETINIB
     Dosage: 45 MG
     Route: 048
     Dates: start: 20210914

REACTIONS (1)
  - Serous retinal detachment [Recovering/Resolving]

NARRATIVE: CASE EVENT DATE: 20210901
